APPROVED DRUG PRODUCT: LARYNGOTRACHEAL ANESTHESIA KIT
Active Ingredient: LIDOCAINE HYDROCHLORIDE
Strength: 4%
Dosage Form/Route: SOLUTION;TOPICAL
Application: A087931 | Product #001
Applicant: KENDALL CO
Approved: Jun 10, 1983 | RLD: No | RS: No | Type: DISCN